FAERS Safety Report 9303905 (Version 1)
Quarter: 2013Q2

REPORT INFORMATION
  Report Type: Report from Study
  Country: US (occurrence: US)
  Receive Date: 20130522
  Receipt Date: 20130522
  Transmission Date: 20140414
  Serious: Yes (Other)
  Sender: FDA-Public Use
  Company Number: US-ABBOTT-13P-163-1091071-00

PATIENT
  Age: 49 Year
  Sex: Female
  Weight: 97.61 kg

DRUGS (17)
  1. HUMIRA [Suspect]
     Indication: RHEUMATOID ARTHRITIS
     Dates: end: 201201
  2. HUMIRA [Suspect]
     Dates: end: 201211
  3. SAVELLA [Concomitant]
     Indication: FIBROMYALGIA
  4. CLARINEX [Concomitant]
     Indication: HYPERSENSITIVITY
  5. AMLODIPINE [Concomitant]
     Indication: HYPERTENSION
  6. FOLIC ACID [Concomitant]
     Indication: VITAMIN SUPPLEMENTATION
  7. VITAMIN D [Concomitant]
     Indication: VITAMIN SUPPLEMENTATION
  8. NEXIUM [Concomitant]
     Indication: GASTROOESOPHAGEAL REFLUX DISEASE
  9. TRAMADOL [Concomitant]
     Indication: PAIN
  10. FLEXERIL [Concomitant]
     Indication: MUSCLE SPASMS
  11. POTASSIUM [Concomitant]
     Indication: BLOOD POTASSIUM DECREASED
  12. MAGNESIUM OXIDE [Concomitant]
     Indication: MINERAL SUPPLEMENTATION
  13. GABAPENTIN [Concomitant]
     Indication: DIABETIC NEUROPATHY
  14. VICTOZA [Concomitant]
     Indication: DIABETES MELLITUS
  15. OREGABIOTIC [Concomitant]
     Indication: ANTIFUNGAL PROPHYLAXIS
  16. OREGABIOTIC [Concomitant]
     Indication: PROPHYLAXIS
  17. OREGABIOTIC [Concomitant]
     Indication: FOOD CRAVING

REACTIONS (9)
  - Osteoarthritis [Recovered/Resolved]
  - Osteoarthritis [Recovered/Resolved]
  - Influenza [Recovered/Resolved]
  - Pneumonia [Recovered/Resolved]
  - Sinusitis [Recovered/Resolved]
  - Arthralgia [Not Recovered/Not Resolved]
  - Inflammation [Not Recovered/Not Resolved]
  - Mobility decreased [Not Recovered/Not Resolved]
  - Malaise [Unknown]
